FAERS Safety Report 6152685-X (Version None)
Quarter: 2009Q2

REPORT INFORMATION
  Report Type: 
  Country: None (occurrence: None)
  Receive Date: 20090413
  Receipt Date: 20090403
  Transmission Date: 20091009
  Serious: Yes (Hospitalization)
  Sender: FDA-Public Use
  Company Number: FR-ROCHE-621598

PATIENT
  Sex: Male
  Weight: 58 kg

DRUGS (5)
  1. KYTRIL [Suspect]
     Dosage: DOSE REPORTED AS 3 (NOS)
     Route: 042
     Dates: start: 20081125, end: 20090210
  2. AVASTIN [Suspect]
     Dosage: DOSAGE: 315 (NOS)
     Route: 042
     Dates: start: 20081015, end: 20090204
  3. SOLU-MEDROL [Suspect]
     Indication: DRUG USE FOR UNKNOWN INDICATION
     Dosage: DRUG NAME: SOLUMEDROL; DOSE REPORTED AS 80
     Route: 042
     Dates: start: 20081125, end: 20090210
  4. CAMPTOSAR [Suspect]
     Indication: DRUG USE FOR UNKNOWN INDICATION
     Dosage: DOSE REPORTED AS 303
     Route: 042
     Dates: start: 20081125, end: 20090210
  5. FLUOROURACIL [Suspect]
     Indication: DRUG USE FOR UNKNOWN INDICATION
     Dosage: DOSAGE: 4046 (NOS); DRUG NAME: FLUOROURACILE
     Route: 042
     Dates: start: 20081125, end: 20090210

REACTIONS (7)
  - ABDOMINAL PAIN UPPER [None]
  - DYSPHAGIA [None]
  - FALL [None]
  - GENERAL PHYSICAL HEALTH DETERIORATION [None]
  - HYPONATRAEMIA [None]
  - ISCHAEMIC STROKE [None]
  - MALAISE [None]
